FAERS Safety Report 7037360-1 (Version None)
Quarter: 2010Q4

REPORT INFORMATION
  Report Type: 
  Country: None (occurrence: None)
  Receive Date: 20101011
  Receipt Date: 20101004
  Transmission Date: 20110411
  Serious: Yes (Death, Hospitalization)
  Sender: FDA-Public Use
  Company Number: US-ELI_LILLY_AND_COMPANY-US201009000645

PATIENT
  Sex: Male
  Weight: 62.585 kg

DRUGS (10)
  1. CETUXIMAB [Suspect]
     Indication: NON-SMALL CELL LUNG CANCER
     Dosage: 680 MG, UNK
     Dates: start: 20100811, end: 20100818
  2. GEMCITABINE HCL [Suspect]
     Indication: NON-SMALL CELL LUNG CANCER
     Dosage: 1700 MG, UNK
     Dates: start: 20100811, end: 20100818
  3. GEMCITABINE HCL [Suspect]
     Dosage: 1700 MG, UNK
     Dates: start: 20100818
  4. CARBOPLATIN [Suspect]
     Indication: NON-SMALL CELL LUNG CANCER
     Dosage: 270 MG, UNK
     Dates: start: 20100811, end: 20100811
  5. BENADRYL [Concomitant]
     Dosage: 50 MG, UNK
     Dates: start: 20100811
  6. BENADRYL [Concomitant]
     Dosage: 25 MG, UNK
     Dates: start: 20100818
  7. ZOFRAN [Concomitant]
     Dosage: 20 MG, UNK
     Dates: start: 20100811
  8. ZOFRAN [Concomitant]
     Dosage: 20 MG, UNK
     Dates: start: 20100818
  9. DECADRON [Concomitant]
     Dosage: 8 MG, UNK
     Dates: start: 20100811
  10. DECADRON [Concomitant]
     Dosage: 8 MG, UNK
     Dates: start: 20100818

REACTIONS (4)
  - FEBRILE NEUTROPENIA [None]
  - NEUTROPENIA [None]
  - PULMONARY EMBOLISM [None]
  - THROMBOCYTOPENIA [None]
